FAERS Safety Report 7936786-9 (Version None)
Quarter: 2011Q4

REPORT INFORMATION
  Report Type: 
  Country: None (occurrence: None)
  Receive Date: 20111123
  Receipt Date: 20111108
  Transmission Date: 20120403
  Serious: Yes (Death)
  Sender: FDA-Public Use
  Company Number: CH-ROCHE-1010159

PATIENT
  Sex: Female

DRUGS (23)
  1. DIGOXIN [Suspect]
     Route: 048
     Dates: start: 20110909, end: 20110909
  2. PREDNISONE TAB [Suspect]
     Route: 048
     Dates: start: 20110906, end: 20110909
  3. CONCOR [Concomitant]
     Dates: start: 20110909
  4. LIDOCAINE HCL [Concomitant]
     Indication: ANAL HAEMORRHAGE
     Dates: start: 20110901, end: 20110909
  5. MARCUMAR [Suspect]
     Indication: ATRIAL FIBRILLATION
     Route: 048
     Dates: start: 20110501
  6. POTASSIUM BICARBONATE [Suspect]
     Indication: HYPOKALAEMIA
     Route: 048
     Dates: end: 20110809
  7. PARAGOL [Concomitant]
     Indication: CONSTIPATION
     Route: 048
     Dates: start: 20110829, end: 20110909
  8. DIGOXIN [Suspect]
     Indication: CARDIAC FAILURE
     Route: 048
     Dates: start: 20110810
  9. SEROQUEL [Suspect]
     Indication: PRODUCT USED FOR UNKNOWN INDICATION
     Dosage: WITH INCREASING DOSE TO 35 MG DAILY
     Route: 048
     Dates: start: 20110831
  10. FUROSEMIDE [Concomitant]
     Indication: CARDIAC FAILURE
  11. PREDNISONE TAB [Suspect]
     Indication: CHRONIC OBSTRUCTIVE PULMONARY DISEASE
     Route: 048
  12. SEROQUEL [Suspect]
     Route: 048
     Dates: end: 20110906
  13. RAMIPRIL [Concomitant]
     Dates: end: 20110810
  14. ACETAMINOPHEN [Concomitant]
     Route: 048
     Dates: start: 20110801
  15. TORSEMIDE [Suspect]
     Indication: CARDIAC FAILURE
     Route: 048
     Dates: start: 20110809
  16. POTASSIUM CHLORIDE [Suspect]
     Indication: HYPOKALAEMIA
     Route: 048
  17. DIGOXIN [Suspect]
     Route: 048
     Dates: start: 20110905
  18. QUETIAPINE FUMARATE [Suspect]
     Indication: PRODUCT USED FOR UNKNOWN INDICATION
     Dosage: 5 MG IN EVENING
     Route: 048
     Dates: end: 20110831
  19. HALDOL [Concomitant]
     Route: 048
     Dates: start: 20110906, end: 20110909
  20. ACETAMINOPHEN [Concomitant]
     Route: 048
     Dates: start: 20110902, end: 20110908
  21. JANUVIA [Concomitant]
     Dates: start: 20110601, end: 20110909
  22. NOVALGIN [Concomitant]
     Route: 048
     Dates: start: 20110909, end: 20110909
  23. KONAKION [Concomitant]
     Dates: start: 20110901

REACTIONS (6)
  - INTERNATIONAL NORMALISED RATIO INCREASED [None]
  - THROMBOCYTOPENIA [None]
  - GASTRIC ULCER [None]
  - GASTROINTESTINAL HAEMORRHAGE [None]
  - MELAENA [None]
  - HAEMORRHAGIC ANAEMIA [None]
